FAERS Safety Report 9961808 (Version 1)
Quarter: 2014Q1

REPORT INFORMATION
  Report Type: Spontaneous
  Country: US (occurrence: None)
  Receive Date: 20140304
  Receipt Date: 20140304
  Transmission Date: 20141002
  Serious: Yes (Hospitalization)
  Sender: FDA-Public Use
  Company Number: None

PATIENT
  Age: 63 Year
  Sex: Male
  Weight: 95.4 kg

DRUGS (1)
  1. ATROVASTATIN [Suspect]
     Indication: HYPERLIPIDAEMIA
     Route: 048
     Dates: start: 20140114, end: 20140203

REACTIONS (5)
  - Myalgia [None]
  - Chest pain [None]
  - Blood creatinine increased [None]
  - Blood urea increased [None]
  - Drug intolerance [None]
